FAERS Safety Report 5256395-2 (Version None)
Quarter: 2007Q1

REPORT INFORMATION
  Report Type: 
  Country: None (occurrence: None)
  Receive Date: 20061204
  Receipt Date: 20060926
  Transmission Date: 20070707
  Serious: No
  Sender: FDA-Public Use
  Company Number: 2006-BP-10620BP

PATIENT
  Sex: Female

DRUGS (9)
  1. SPIRIVA [Suspect]
     Indication: CHRONIC OBSTRUCTIVE PULMONARY DISEASE
     Dosage: 18 MCG (18 MCG, 1 IN 1 D) IH
     Route: 055
  2. SPIRIVA [Suspect]
     Indication: RESPIRATORY DISORDER
     Dosage: 18 MCG (18 MCG, 1 IN 1 D) IH
     Route: 055
  3. SPIRIVA [Suspect]
     Indication: SPUTUM RETENTION
     Dosage: 18 MCG (18 MCG, 1 IN 1 D) IH
     Route: 055
  4. BENZONATE (BENZONATATE) [Concomitant]
  5. BAYER (ACETYLSALICYLIC ACID) [Concomitant]
  6. ZOCOR [Concomitant]
  7. CLOPIDOGREL [Concomitant]
  8. SYNTHROID [Concomitant]
  9. DETROL LA [Concomitant]

REACTIONS (1)
  - SKIN LACERATION [None]
